FAERS Safety Report 5867428-4 (Version None)
Quarter: 2008Q3

REPORT INFORMATION
  Report Type: 
  Country: None (occurrence: None)
  Receive Date: 20080902
  Receipt Date: 20080902
  Transmission Date: 20090109
  Serious: Yes (Hospitalization)
  Sender: FDA-Public Use
  Company Number: PHEH1996US00243

PATIENT
  Sex: Male
  Weight: 61.1 kg

DRUGS (13)
  1. SANDIMMUNE [Suspect]
     Dosage: UNKNOWN
     Route: 065
     Dates: start: 19950911, end: 19950916
  2. VANCOMYCIN HYDROCHLORIDE [Concomitant]
  3. CLAFORAN [Concomitant]
  4. DARVOCET [Concomitant]
  5. PROGRAF [Concomitant]
  6. PREDNISONE TAB [Concomitant]
  7. OSCAL (CALCIUM CARBONATE) [Concomitant]
  8. IMURAN [Concomitant]
  9. MEZLOCILLIN [Concomitant]
  10. NYSTATIN [Concomitant]
  11. BACTRIM [Concomitant]
  12. MAALOX [Concomitant]
  13. CIPRO [Concomitant]

REACTIONS (2)
  - BILE DUCT STENOSIS [None]
  - CYTOMEGALOVIRUS INFECTION [None]
